FAERS Safety Report 25433172 (Version 1)
Quarter: 2025Q2

REPORT INFORMATION
  Report Type: Spontaneous
  Country: FR (occurrence: FR)
  Receive Date: 20250613
  Receipt Date: 20250613
  Transmission Date: 20250716
  Serious: Yes (Disabling)
  Sender: PFIZER
  Company Number: None

PATIENT
  Age: 78 Year
  Sex: Male
  Weight: 71.4 kg

DRUGS (4)
  1. MEKTOVI [Suspect]
     Active Substance: BINIMETINIB
     Indication: Erdheim-Chester disease
     Dosage: 15 MG, DAILY
     Route: 048
     Dates: start: 20230515
  2. URAPIDIL [Suspect]
     Active Substance: URAPIDIL
     Indication: Hypertension
     Dosage: 80 MG, DAILY
     Route: 048
     Dates: start: 20250130
  3. URAPIDIL [Suspect]
     Active Substance: URAPIDIL
     Dosage: 60 MG, 2X/DAY
     Route: 048
  4. URAPIDIL [Suspect]
     Active Substance: URAPIDIL
     Dosage: 80 MG, 2X/DAY
     Route: 048

REACTIONS (3)
  - Disinhibition [Not Recovered/Not Resolved]
  - Language disorder [Not Recovered/Not Resolved]
  - Off label use [Unknown]

NARRATIVE: CASE EVENT DATE: 20230515
